FAERS Safety Report 5033991-9 (Version None)
Quarter: 2006Q2

REPORT INFORMATION
  Report Type: 
  Country: None (occurrence: None)
  Receive Date: 20060626
  Receipt Date: 20060615
  Transmission Date: 20061013
  Serious: Yes (Hospitalization, Disabling)
  Sender: FDA-Public Use
  Company Number: 2006AP02811

PATIENT
  Age: 75 Year
  Sex: Female

DRUGS (4)
  1. OMEPRAL [Suspect]
     Indication: DUODENAL ULCER
     Route: 048
     Dates: start: 20060518, end: 20060614
  2. BEZATOR SR [Suspect]
     Route: 048
     Dates: start: 20010101
  3. FERO-GRADUMET [Concomitant]
     Route: 048
     Dates: start: 20060518
  4. DEPAS [Concomitant]
     Route: 048

REACTIONS (1)
  - RHABDOMYOLYSIS [None]
